FAERS Safety Report 9656434 (Version 1)
Quarter: 2013Q4

REPORT INFORMATION
  Report Type: Spontaneous
  Country: CN (occurrence: CN)
  Receive Date: 20131030
  Receipt Date: 20131030
  Transmission Date: 20140711
  Serious: Yes (Life-Threatening)
  Sender: FDA-Public Use
  Company Number: CN-BAYER-2013-131589

PATIENT
  Age: 62 Year
  Sex: Female
  Weight: 60 kg

DRUGS (2)
  1. ULTRAVIST [Suspect]
     Indication: IMAGING PROCEDURE
     Dosage: 50 ML, ONCE
     Route: 042
     Dates: start: 20120704, end: 20120704
  2. DEXAMETHASONE [Concomitant]
     Dosage: 100 MG, UNK
     Route: 042
     Dates: start: 20120704

REACTIONS (4)
  - Dizziness [Recovering/Resolving]
  - Nausea [Recovering/Resolving]
  - Vomiting [Recovering/Resolving]
  - Anaphylactic shock [Recovering/Resolving]
